FAERS Safety Report 7349632-1 (Version None)
Quarter: 2011Q1

REPORT INFORMATION
  Report Type: 
  Country: None (occurrence: None)
  Receive Date: 20110314
  Receipt Date: 20100328
  Transmission Date: 20110831
  Serious: No
  Sender: FDA-Public Use
  Company Number: A0853124A

PATIENT

DRUGS (1)
  1. AUGMENTIN '125' [Suspect]
     Dosage: 875MG TWICE PER DAY
     Route: 065

REACTIONS (1)
  - ADVERSE EVENT [None]
